FAERS Safety Report 25243817 (Version 2)
Quarter: 2025Q2

REPORT INFORMATION
  Report Type: Report from Study
  Country: CA (occurrence: CA)
  Receive Date: 20250428
  Receipt Date: 20250619
  Transmission Date: 20250716
  Serious: Yes (Hospitalization, Other)
  Sender: ABBVIE
  Company Number: CA-ABBVIE-6247541

PATIENT
  Age: 73 Year
  Sex: Female

DRUGS (1)
  1. RINVOQ [Suspect]
     Active Substance: UPADACITINIB
     Indication: Colitis ulcerative
     Route: 048
     Dates: start: 20240530, end: 20250429

REACTIONS (7)
  - Haemorrhagic stroke [Recovering/Resolving]
  - Pulmonary embolism [Recovered/Resolved]
  - Pain in extremity [Unknown]
  - Skin discolouration [Unknown]
  - Erythema [Unknown]
  - Syncope [Unknown]
  - Paralysis [Unknown]

NARRATIVE: CASE EVENT DATE: 20200404
